FAERS Safety Report 20355996 (Version 2)
Quarter: 2022Q4

REPORT INFORMATION
  Report Type: Spontaneous
  Country: US (occurrence: US)
  Receive Date: 20220120
  Receipt Date: 20221104
  Transmission Date: 20230112
  Serious: Yes (Other)
  Sender: FDA-Public Use
  Company Number: US-PFIZER INC-202101843232

PATIENT
  Age: 78 Year
  Sex: Male
  Weight: 63.492 kg

DRUGS (1)
  1. INLYTA [Suspect]
     Active Substance: AXITINIB
     Indication: Lung neoplasm
     Dosage: 5 MG
     Dates: start: 20211208

REACTIONS (9)
  - Mental impairment [Unknown]
  - Off label use [Unknown]
  - Pruritus [Unknown]
  - Fatigue [Unknown]
  - Decreased appetite [Unknown]
  - Weight decreased [Unknown]
  - Dry mouth [Unknown]
  - Dry skin [Unknown]
  - Fatigue [Unknown]
